FAERS Safety Report 10078969 (Version 1)
Quarter: 2014Q2

REPORT INFORMATION
  Report Type: Spontaneous
  Country: US (occurrence: None)
  Receive Date: 20140414
  Receipt Date: 20140414
  Transmission Date: 20141212
  Serious: Yes (Hospitalization, Other)
  Sender: FDA-Public Use
  Company Number: None

PATIENT
  Age: 86 Year
  Sex: Male

DRUGS (6)
  1. METHOTREXATE [Suspect]
     Dosage: 6 TABLETS
     Route: 048
     Dates: start: 20121025, end: 20140409
  2. AMLODIPINE [Concomitant]
  3. BENAZEPRIL [Concomitant]
  4. CARVEDILOL [Concomitant]
  5. PREDNISONE [Concomitant]
  6. XIFAXAN [Concomitant]

REACTIONS (1)
  - Gastrointestinal hypomotility [None]
